FAERS Safety Report 13026592 (Version 1)
Quarter: 2016Q4

REPORT INFORMATION
  Report Type: Spontaneous
  Country: US (occurrence: US)
  Receive Date: 20161214
  Receipt Date: 20161214
  Transmission Date: 20170207
  Serious: No
  Sender: FDA-Public Use
  Company Number: US-GLAXOSMITHKLINE-US2016182211

PATIENT
  Age: 63 Year
  Sex: Female

DRUGS (2)
  1. TRANSDERM SCOP [Suspect]
     Active Substance: SCOPOLAMINE
     Indication: MOTION SICKNESS
     Dosage: UNK
     Dates: end: 20161126
  2. ZOFRAN [Suspect]
     Active Substance: ONDANSETRON HYDROCHLORIDE
     Indication: NAUSEA
     Dosage: UNK

REACTIONS (16)
  - Headache [Not Recovered/Not Resolved]
  - Nausea [Recovered/Resolved]
  - Asthenia [Recovering/Resolving]
  - Influenza [Unknown]
  - Fatigue [Recovering/Resolving]
  - Thinking abnormal [Unknown]
  - Incorrect dosage administered [Unknown]
  - Dizziness [Recovering/Resolving]
  - Somnolence [Not Recovered/Not Resolved]
  - Gastroenteritis viral [Unknown]
  - Vomiting [Recovered/Resolved]
  - Dry mouth [Recovering/Resolving]
  - Disturbance in attention [Unknown]
  - Disorientation [Recovering/Resolving]
  - Photosensitivity reaction [Recovering/Resolving]
  - Abdominal pain upper [Recovered/Resolved]

NARRATIVE: CASE EVENT DATE: 20161128
